FAERS Safety Report 7206822-6 (Version None)
Quarter: 2011Q1

REPORT INFORMATION
  Report Type: 
  Country: None (occurrence: None)
  Receive Date: 20110103
  Receipt Date: 20101229
  Transmission Date: 20110831
  Serious: Yes (Death)
  Sender: FDA-Public Use
  Company Number: TN-SANOFI-AVENTIS-2010SA078479

PATIENT
  Age: 62 Year
  Sex: Female

DRUGS (11)
  1. ATORVASTATIN CALCIUM [Concomitant]
     Route: 048
     Dates: end: 20100907
  2. INSULIN MIXTARD [Concomitant]
     Route: 048
     Dates: end: 20100907
  3. KARDEGIC [Concomitant]
     Route: 048
     Dates: end: 20100907
  4. HYTACAND [Concomitant]
     Route: 048
     Dates: end: 20100907
  5. LASIX [Concomitant]
     Route: 048
     Dates: end: 20100907
  6. FUMAFER [Concomitant]
     Route: 048
     Dates: end: 20100907
  7. PLAVIX [Suspect]
     Route: 048
     Dates: start: 20100201, end: 20100907
  8. AMAREL [Concomitant]
     Route: 048
     Dates: end: 20100907
  9. DILTIAZEM HCL [Concomitant]
     Route: 048
     Dates: end: 20100907
  10. PLAVIX [Suspect]
     Indication: CORONARY ARTERIAL STENT INSERTION
     Route: 048
     Dates: start: 20100201, end: 20100907
  11. AMLOR [Concomitant]
     Route: 048
     Dates: end: 20100907

REACTIONS (1)
  - MYOCARDIAL INFARCTION [None]
